FAERS Safety Report 9228416 (Version 3)
Quarter: 2013Q2

REPORT INFORMATION
  Report Type: Report from Study
  Country: US (occurrence: US)
  Receive Date: 20130412
  Receipt Date: 20130506
  Transmission Date: 20140414
  Serious: Yes (Hospitalization)
  Sender: FDA-Public Use
  Company Number: US-ACTELION-A-NJ2013-81696

PATIENT
  Age: 57 Year
  Sex: Female

DRUGS (2)
  1. VENTAVIS [Suspect]
     Indication: PULMONARY ARTERIAL HYPERTENSION
     Dosage: 2.5 MG, 6 TIMES A DAY
     Route: 055
     Dates: start: 201303
  2. OXYGEN [Concomitant]

REACTIONS (6)
  - Pulmonary hypertension [Recovered/Resolved]
  - Hypoxia [Recovered/Resolved]
  - Dyspnoea [Recovered/Resolved]
  - Pleural effusion [Recovered/Resolved]
  - Local swelling [Recovered/Resolved]
  - Chest discomfort [Recovered/Resolved]
